FAERS Safety Report 20514342 (Version 1)
Quarter: 2022Q1

REPORT INFORMATION
  Report Type: Spontaneous
  Country: US (occurrence: US)
  Receive Date: 20220224
  Receipt Date: 20220224
  Transmission Date: 20220423
  Serious: No
  Sender: FDA-Public Use
  Company Number: US-VYERA PHARMACEUTICALS, LLC-2021VYE00023

PATIENT
  Sex: Male
  Weight: 56.689 kg

DRUGS (9)
  1. DARAPRIM [Suspect]
     Active Substance: PYRIMETHAMINE
     Indication: Toxoplasmosis
     Dosage: 50 MG, 1X/DAY
     Route: 048
     Dates: start: 20210312
  2. DARAPRIM [Suspect]
     Active Substance: PYRIMETHAMINE
     Indication: HIV infection
  3. BIKTARVY [Concomitant]
     Active Substance: BICTEGRAVIR SODIUM\EMTRICITABINE\TENOFOVIR ALAFENAMIDE FUMARATE
     Dosage: 1 TABLET, 1X/DAY
     Route: 048
  4. ATOVAQUONE [Concomitant]
     Active Substance: ATOVAQUONE
     Dosage: 10 ML, WITH FOOD EVERY 12 HOURS
     Route: 048
  5. FLONASE [Concomitant]
     Active Substance: FLUTICASONE PROPIONATE
     Dosage: 1 SPRAY, IN EACH NOSTRIL DAILY AS NEEDED
  6. CLARITIN-D NOS [Concomitant]
     Active Substance: LORATADINE\PSEUDOEPHEDRINE SULFATE
     Dosage: 1 TABLET, DAILY AS NEEDED
     Route: 048
  7. CLOTRIMAZOLE AND BETAMETHASONE DIPROPIONATE [Concomitant]
     Active Substance: BETAMETHASONE\BETAMETHASONE DIPROPIONATE\CLOTRIMAZOLE
     Dosage: APPLY TO AFFECTED SKIN, 2X/DAY
     Route: 061
  8. CLINDAMYCIN [Concomitant]
     Active Substance: CLINDAMYCIN
     Dosage: 2 CAPSULES, EVERY 6 HOURS
  9. KEPPRA [Concomitant]
     Active Substance: LEVETIRACETAM
     Dosage: 500 MG, EVERY 12 HOURS
     Route: 048

REACTIONS (2)
  - COVID-19 [Recovering/Resolving]
  - Off label use [Not Recovered/Not Resolved]

NARRATIVE: CASE EVENT DATE: 20210101
